FAERS Safety Report 8953162 (Version 1)
Quarter: 2012Q4

REPORT INFORMATION
  Report Type: 
  Country: BR (occurrence: BR)
  Receive Date: 20121205
  Receipt Date: 20121205
  Transmission Date: 20130627
  Serious: Yes (Other)
  Sender: FDA-Public Use
  Company Number: BR-AMGEN-BRASP2012071999

PATIENT
  Sex: Male

DRUGS (1)
  1. ENBREL [Suspect]
     Indication: PRODUCT USED FOR UNKNOWN INDICATION
     Dosage: UNK
     Dates: start: 2011

REACTIONS (6)
  - Pyoderma [Unknown]
  - Erythema [Not Recovered/Not Resolved]
  - Skin mass [Not Recovered/Not Resolved]
  - Skin lesion [Recovering/Resolving]
  - Sporotrichosis [Unknown]
  - Periporitis staphylogenes [Unknown]
